FAERS Safety Report 5030167-6 (Version None)
Quarter: 2006Q2

REPORT INFORMATION
  Report Type: 
  Country: None (occurrence: None)
  Receive Date: 20060614
  Receipt Date: 20060607
  Transmission Date: 20061013
  Serious: Yes (Hospitalization)
  Sender: FDA-Public Use
  Company Number: 2002004127

PATIENT
  Age: 79 Year
  Sex: Male

DRUGS (5)
  1. NORVASC [Suspect]
     Indication: ESSENTIAL HYPERTENSION
     Dosage: 5 MG (DAILY), ORAL
     Route: 048
     Dates: start: 20020110, end: 20020515
  2. NORMORIX MITE (HYDROCHLOROTHIAZIDE, AMILORIDE HYDROCHLORIDE) [Suspect]
     Indication: ESSENTIAL HYPERTENSION
     Dosage: ORAL
     Route: 048
     Dates: start: 20011220, end: 20020429
  3. BEHEPAN (CYANOCOBALAMIN) [Concomitant]
  4. TIMPILO (PILOCARPINE HYDROCHLORIDE, TIMOLOL MALEATE) [Concomitant]
  5. ALPHAGAN [Concomitant]

REACTIONS (5)
  - DRUG INEFFECTIVE [None]
  - PANCYTOPENIA [None]
  - PURPURA [None]
  - RASH ERYTHEMATOUS [None]
  - SPLENECTOMY [None]
